FAERS Safety Report 22265932 (Version 1)
Quarter: 2023Q2

REPORT INFORMATION
  Report Type: Spontaneous
  Country: FR (occurrence: FR)
  Receive Date: 20230428
  Receipt Date: 20230428
  Transmission Date: 20230721
  Serious: Yes (Hospitalization, Other)
  Sender: FDA-Public Use
  Company Number: FR-AMGEN-FRASP2023061515

PATIENT
  Age: 50 Year
  Sex: Female
  Weight: 105 kg

DRUGS (7)
  1. ADALIMUMAB [Suspect]
     Active Substance: ADALIMUMAB
     Indication: Ankylosing spondylitis
     Dosage: 40 MILLIGRAM, Q3WK
     Route: 058
     Dates: start: 20221020, end: 20230101
  2. KARDEGIC [Concomitant]
     Active Substance: ASPIRIN DL-LYSINE
  3. ASPIRIN [Concomitant]
     Active Substance: ASPIRIN
     Dosage: 160 MILLIGRAM, QD
  4. LANSOPRAZOLE [Concomitant]
     Active Substance: LANSOPRAZOLE
     Dosage: 15 MILLIGRAM, QD
  5. ATORVASTATIN [Concomitant]
     Active Substance: ATORVASTATIN
     Dosage: 10 MILLIGRAM, QD
  6. MELATONIN [Concomitant]
     Active Substance: MELATONIN
     Dosage: 2 MILLIGRAM, QD
  7. ACETAMINOPHEN [Concomitant]
     Active Substance: ACETAMINOPHEN
     Dosage: 1000 MILLIGRAM, Q6H

REACTIONS (12)
  - Thalamic stroke [Recovered/Resolved]
  - Hemiplegia [Unknown]
  - Cranial nerve paralysis [Unknown]
  - Mydriasis [Unknown]
  - Gaze palsy [Unknown]
  - Facial paralysis [Unknown]
  - Ataxia [Unknown]
  - Eyelid ptosis [Unknown]
  - Strabismus [Unknown]
  - Off label use [Unknown]
  - Abdominal pain upper [Unknown]
  - Diplopia [Unknown]

NARRATIVE: CASE EVENT DATE: 20221231
